FAERS Safety Report 17809999 (Version 2)
Quarter: 2020Q2

REPORT INFORMATION
  Report Type: Report from Study
  Country: JP (occurrence: JP)
  Receive Date: 20200520
  Receipt Date: 20200522
  Transmission Date: 20200714
  Serious: Yes (Death, Hospitalization, Other)
  Sender: FDA-Public Use
  Company Number: JP-BRISTOL-MYERS SQUIBB COMPANY-BMS-2020-039353

PATIENT
  Age: 66 Year
  Sex: Male

DRUGS (1)
  1. APIXABAN [Suspect]
     Active Substance: APIXABAN
     Indication: PRODUCT USED FOR UNKNOWN INDICATION
     Dosage: UNK
     Route: 065

REACTIONS (13)
  - Oesophageal carcinoma [Recovering/Resolving]
  - Acute myocardial infarction [Recovered/Resolved]
  - Acute respiratory distress syndrome [Unknown]
  - Haematuria [Recovering/Resolving]
  - Cardiac failure [Fatal]
  - Pneumonia klebsiella [Recovered/Resolved]
  - Post procedural infection [Recovering/Resolving]
  - Enterococcal bacteraemia [Recovering/Resolving]
  - Low cardiac output syndrome [Unknown]
  - Vascular stent thrombosis [Recovered/Resolved]
  - Sepsis [Recovered/Resolved]
  - Pneumonia aspiration [Recovering/Resolving]
  - Disseminated intravascular coagulation [Unknown]

NARRATIVE: CASE EVENT DATE: 20190604
